FAERS Safety Report 5143022-8 (Version None)
Quarter: 2006Q4

REPORT INFORMATION
  Report Type: 
  Country: None (occurrence: None)
  Receive Date: 20061103
  Receipt Date: 20061023
  Transmission Date: 20070319
  Serious: Yes (Other)
  Sender: FDA-Public Use
  Company Number: CA-ELI_LILLY_AND_COMPANY-CA200610004705

PATIENT
  Age: 68 Year
  Sex: Male

DRUGS (3)
  1. ZYPREXA ZYDIS [Suspect]
     Indication: WERNICKE'S ENCEPHALOPATHY
     Dosage: 5 MG, UNK
     Dates: start: 20061001
  2. HALDOL [Concomitant]
  3. VALIUM                                  /NET/ [Concomitant]

REACTIONS (13)
  - AGITATION [None]
  - ASPIRATION [None]
  - CONFUSIONAL STATE [None]
  - DRY MOUTH [None]
  - DYSPHAGIA [None]
  - EATING DISORDER SYMPTOM [None]
  - FALL [None]
  - GASTROINTESTINAL TUBE INSERTION [None]
  - GENERAL PHYSICAL HEALTH DETERIORATION [None]
  - INSOMNIA [None]
  - SPEECH DISORDER [None]
  - URINE COLOUR ABNORMAL [None]
  - WEIGHT DECREASED [None]
